FAERS Safety Report 9105852 (Version 1)
Quarter: 2013Q1

REPORT INFORMATION
  Report Type: Spontaneous
  Country: US (occurrence: US)
  Receive Date: 20130220
  Receipt Date: 20130220
  Transmission Date: 20140127
  Serious: Yes (Other)
  Sender: FDA-Public Use
  Company Number: PHEH2013US004082

PATIENT
  Sex: Male

DRUGS (4)
  1. FOCALIN XR [Suspect]
     Dosage: 20 MG, UNK
     Route: 048
  2. RIFAMPIN [Concomitant]
  3. ZYVOX [Concomitant]
  4. VICODIN [Concomitant]

REACTIONS (2)
  - Bone cancer [Unknown]
  - Graft infection [Unknown]
